FAERS Safety Report 12521970 (Version 2)
Quarter: 2016Q3

REPORT INFORMATION
  Report Type: Spontaneous
  Country: US (occurrence: US)
  Receive Date: 20160701
  Receipt Date: 20160914
  Transmission Date: 20161109
  Serious: Yes (Other)
  Sender: FDA-Public Use
  Company Number: US-JNJFOC-20160624137

PATIENT
  Age: 58 Year
  Sex: Male
  Weight: 124.74 kg

DRUGS (3)
  1. XARELTO [Suspect]
     Active Substance: RIVAROXABAN
     Indication: CEREBROVASCULAR ACCIDENT PROPHYLAXIS
     Dosage: PATIENT THOUGHT HE STARTED RIVAROXABAN IN NOV-2013 AT NIGHT
     Route: 048
     Dates: start: 201311
  2. NORCO [Concomitant]
     Active Substance: ACETAMINOPHEN\HYDROCODONE BITARTRATE
     Indication: BACK PAIN
     Route: 065
  3. XARELTO [Suspect]
     Active Substance: RIVAROXABAN
     Indication: ATRIAL FIBRILLATION
     Dosage: PATIENT THOUGHT HE STARTED RIVAROXABAN IN NOV-2013 AT NIGHT
     Route: 048
     Dates: start: 201311

REACTIONS (3)
  - Sciatica [Not Recovered/Not Resolved]
  - Joint injury [Unknown]
  - Osteoarthritis [Not Recovered/Not Resolved]

NARRATIVE: CASE EVENT DATE: 20151029
